FAERS Safety Report 15487066 (Version 1)
Quarter: 2018Q4

REPORT INFORMATION
  Report Type: Spontaneous
  Country: US (occurrence: US)
  Receive Date: 20181003
  Receipt Date: 20181003
  Transmission Date: 20190205
  Serious: Yes (Life-Threatening, Hospitalization, Disabling)
  Sender: FDA-Public Use
  Company Number: None

PATIENT
  Age: 24 Year
  Sex: Female
  Weight: 68.85 kg

DRUGS (10)
  1. PREDNISONE. [Concomitant]
     Active Substance: PREDNISONE
  2. KING BIO HEARTBURN RELIEVER [Suspect]
     Active Substance: HOMEOPATHICS
     Indication: DYSPEPSIA
     Dosage: ?          OTHER STRENGTH:SPRAYS;QUANTITY:3 SPRAY(S);?
     Route: 060
     Dates: start: 20180701, end: 20180911
  3. KING BIO HEARTBURN RELIEVER [Suspect]
     Active Substance: HOMEOPATHICS
     Indication: NAUSEA
     Dosage: ?          OTHER STRENGTH:SPRAYS;QUANTITY:3 SPRAY(S);?
     Route: 060
     Dates: start: 20180701, end: 20180911
  4. NATURE-THROID [Concomitant]
     Active Substance: THYROID, PORCINE
  5. LASIX [Concomitant]
     Active Substance: FUROSEMIDE
  6. VITAMIN D [Concomitant]
     Active Substance: CHOLECALCIFEROL
  7. VITAMIN E [Concomitant]
     Active Substance: .ALPHA.-TOCOPHEROL
  8. OMEGA -3  FISH OIL [Concomitant]
  9. VITAMIN B COMPLEX [Concomitant]
     Active Substance: CYANOCOBALAMIN\DEXPANTHENOL\NIACINAMIDE\PYRIDOXINE HYDROCHLORIDE\RIBOFLAVIN 5^-PHOSPHATE SODIUM\THIAMINE HYDROCHLORIDE\VITAMIN B COMPLEX
  10. ALBUTEROL. [Concomitant]
     Active Substance: ALBUTEROL

REACTIONS (8)
  - Inappropriate antidiuretic hormone secretion [None]
  - Pleural effusion [None]
  - Lung infiltration [None]
  - Bedridden [None]
  - Product contamination microbial [None]
  - Pneumonia legionella [None]
  - Recalled product [None]
  - Renal impairment [None]

NARRATIVE: CASE EVENT DATE: 20180911
